FAERS Safety Report 19054401 (Version 1)
Quarter: 2021Q1

REPORT INFORMATION
  Report Type: Spontaneous
  Country: IT (occurrence: IT)
  Receive Date: 20210324
  Receipt Date: 20210324
  Transmission Date: 20210420
  Serious: Yes (Other)
  Sender: FDA-Public Use
  Company Number: NVSC2021IT060507

PATIENT
  Age: 67 Year
  Sex: Male

DRUGS (1)
  1. TAMSULOSINA HEXAL [Suspect]
     Active Substance: TAMSULOSIN HYDROCHLORIDE
     Indication: POLLAKIURIA
     Dosage: 0.4 MG
     Route: 065

REACTIONS (3)
  - Dizziness [Unknown]
  - Vertigo [Unknown]
  - Erectile dysfunction [Unknown]
